FAERS Safety Report 8494285-2 (Version None)
Quarter: 2012Q2

REPORT INFORMATION
  Report Type: 
  Country: None (occurrence: None)
  Receive Date: 20120628
  Receipt Date: 20120613
  Transmission Date: 20120825
  Serious: Yes (Hospitalization)
  Sender: FDA-Public Use
  Company Number: ACO_30589_2012

PATIENT
  Age: 41 Year
  Sex: Male

DRUGS (2)
  1. TYSARBI (NATALZIUMAB) [Concomitant]
  2. AMPYRA [Suspect]
     Indication: MULTIPLE SCLEROSIS
     Dosage: 10 MG, BID,ORAL
     Route: 048
     Dates: start: 20120508

REACTIONS (1)
  - ATRIAL FIBRILLATION [None]
